FAERS Safety Report 9563683 (Version 2)
Quarter: 2013Q3

REPORT INFORMATION
  Report Type: Spontaneous
  Country: FR (occurrence: None)
  Receive Date: 20120914
  Receipt Date: 20130916
  Transmission Date: 20140515
  Serious: Yes (Hospitalization)
  Sender: FDA-Public Use
  Company Number: JPI-P-001854

PATIENT
  Age: 24 Year
  Sex: Female

DRUGS (12)
  1. XYREM [Suspect]
     Indication: NARCOLEPSY
     Dates: start: 20070622, end: 20070705
  2. XYREM [Suspect]
     Indication: HYPERSOMNIA
     Dates: start: 20070622, end: 20070705
  3. DEXTROPROPOXYPHENE/ PARACETAMOL [Suspect]
     Indication: MIGRAINE
     Dates: start: 200811
  4. MODAFINIL [Concomitant]
  5. PAROXETINE HYDROCHLORIDE [Concomitant]
  6. LEVOTHYROXINE SODIUM [Concomitant]
  7. CYPROTERONE ACETATE W/ETHINYL ESTRADIOL [Concomitant]
  8. NOMEGESTROL ACETATE [Concomitant]
  9. PRAZEPAM [Concomitant]
  10. VENLAFAXINE [Concomitant]
  11. OLANZAPINE [Concomitant]
  12. VITAMIN COMPLEXES [Concomitant]

REACTIONS (43)
  - Impatience [None]
  - Myoclonus [None]
  - Memory impairment [None]
  - Vision blurred [None]
  - Disorientation [None]
  - Agitation [None]
  - Nausea [None]
  - Headache [None]
  - Incoherent [None]
  - Hot flush [None]
  - Dysgeusia [None]
  - Nightmare [None]
  - Balance disorder [None]
  - Dizziness [None]
  - Fatigue [None]
  - Hyperhidrosis [None]
  - Eructation [None]
  - Alopecia [None]
  - Constipation [None]
  - Diarrhoea [None]
  - Depression [None]
  - Accidental overdose [None]
  - Nasopharyngitis [None]
  - Irritability [None]
  - Insomnia [None]
  - Migraine [None]
  - Personality disorder [None]
  - Nocturia [None]
  - Fall [None]
  - Abdominal pain [None]
  - Hypersomnia [None]
  - Pruritus generalised [None]
  - Feeling abnormal [None]
  - Ear pain [None]
  - Acne [None]
  - Drug tolerance increased [None]
  - Withdrawal syndrome [None]
  - Vertigo [None]
  - Pelvic pain [None]
  - Aggression [None]
  - Gait disturbance [None]
  - Aphagia [None]
  - Drug ineffective [None]
